FAERS Safety Report 18557998 (Version 3)
Quarter: 2021Q1

REPORT INFORMATION
  Report Type: Report from Study
  Country: None (occurrence: AR)
  Receive Date: 20201130
  Receipt Date: 20210209
  Transmission Date: 20210419
  Serious: Yes (Hospitalization, Other)
  Sender: FDA-Public Use
  Company Number: AR-ABBVIE-20K-007-3669895-00

PATIENT
  Age: 42 Year
  Sex: Female

DRUGS (2)
  1. HUMIRA [Suspect]
     Active Substance: ADALIMUMAB
     Route: 058
     Dates: start: 20210127
  2. HUMIRA [Suspect]
     Active Substance: ADALIMUMAB
     Indication: RHEUMATOID ARTHRITIS
     Route: 058
     Dates: start: 20190506, end: 2020

REACTIONS (4)
  - Viraemia [Recovering/Resolving]
  - White blood cell count decreased [Recovering/Resolving]
  - Uterine leiomyoma [Recovering/Resolving]
  - Leiomyoma [Unknown]

NARRATIVE: CASE EVENT DATE: 202009
